FAERS Safety Report 23302918 (Version 1)
Quarter: 2023Q4

REPORT INFORMATION
  Report Type: Spontaneous
  Country: US (occurrence: US)
  Receive Date: 20231215
  Receipt Date: 20231215
  Transmission Date: 20240110
  Serious: No
  Sender: FDA-Public Use
  Company Number: US-PRIMUS-2023-US-000685

PATIENT
  Age: 77 Year
  Sex: Female

DRUGS (2)
  1. IMPOYZ [Suspect]
     Active Substance: CLOBETASOL PROPIONATE
     Indication: Psoriasis
     Dosage: APPLY TO AFFECTED AREAS TWICE DAILY
     Route: 061
     Dates: start: 20221209, end: 20230110
  2. BYETTA [Concomitant]
     Active Substance: EXENATIDE

REACTIONS (4)
  - Drug ineffective [Unknown]
  - Condition aggravated [Unknown]
  - Incorrect product administration duration [Unknown]
  - Psoriasis [Unknown]

NARRATIVE: CASE EVENT DATE: 20221209
